FAERS Safety Report 4902682-4 (Version None)
Quarter: 2006Q1

REPORT INFORMATION
  Report Type: 
  Country: None (occurrence: None)
  Receive Date: 20060207
  Receipt Date: 20050825
  Transmission Date: 20060701
  Serious: Yes (Hospitalization)
  Sender: FDA-Public Use
  Company Number: CL-MERCK-0508CHL00012

PATIENT
  Age: 19 Day
  Sex: Male
  Weight: 3 kg

DRUGS (5)
  1. SINGULAIR [Suspect]
     Indication: ASTHMA
     Dates: start: 20030801, end: 20050401
  2. ALBUTEROL [Concomitant]
     Indication: ASTHMA
     Dates: start: 20030801
  3. BUDESONIDE AND FORMOTEROL FUMARATE [Concomitant]
     Indication: ASTHMA
     Dates: start: 20030801, end: 20050401
  4. BUDESONIDE AND FORMOTEROL FUMARATE [Concomitant]
     Dates: start: 20050401
  5. ACETAMINOPHEN [Concomitant]
     Indication: MIGRAINE

REACTIONS (1)
  - DYSPNOEA [None]
